FAERS Safety Report 15279830 (Version 1)
Quarter: 2018Q3

REPORT INFORMATION
  Report Type: Spontaneous
  Country: FR (occurrence: FR)
  Receive Date: 20180815
  Receipt Date: 20180815
  Transmission Date: 20181010
  Serious: Yes (Other)
  Sender: FDA-Public Use
  Company Number: FR-TEVA-2018-FR-940905

PATIENT
  Age: 79 Year
  Sex: Male
  Weight: 45 kg

DRUGS (3)
  1. ETOPOSIDE TEVA [Suspect]
     Active Substance: ETOPOSIDE
     Indication: RICHTER^S SYNDROME
     Route: 041
     Dates: start: 20180410, end: 20180410
  2. HOLOXAN [Suspect]
     Active Substance: IFOSFAMIDE
     Indication: RICHTER^S SYNDROME
     Route: 041
     Dates: start: 20180410, end: 20180410
  3. MABTHERA [Suspect]
     Active Substance: RITUXIMAB
     Indication: RICHTER^S SYNDROME
     Route: 041
     Dates: start: 20180410, end: 20180410

REACTIONS (1)
  - Pancreatitis [Not Recovered/Not Resolved]

NARRATIVE: CASE EVENT DATE: 20180411
